FAERS Safety Report 16851536 (Version 1)
Quarter: 2019Q3

REPORT INFORMATION
  Report Type: Spontaneous
  Country: FR (occurrence: FR)
  Receive Date: 20190925
  Receipt Date: 20190925
  Transmission Date: 20191005
  Serious: Yes (Death, Other)
  Sender: FDA-Public Use
  Company Number: FR-PFIZER INC-2019409576

PATIENT
  Age: 60 Year
  Sex: Female

DRUGS (16)
  1. EFFEXOR LP [Suspect]
     Active Substance: VENLAFAXINE HYDROCHLORIDE
     Indication: DEPRESSION
     Dosage: 75 MG, 1X/DAY (1-0-0)
     Route: 048
     Dates: start: 2019, end: 20190823
  2. KEPPRA [Suspect]
     Active Substance: LEVETIRACETAM
     Indication: EPILEPSY
     Dosage: 1500 MG ALTERNATE DAY (1.5-0-1.5)
     Route: 048
     Dates: start: 201704, end: 20190816
  3. TRANXENE [Suspect]
     Active Substance: CLORAZEPATE DIPOTASSIUM
     Indication: AGITATION
     Dosage: 80 TO 130 MG/DAY
     Route: 042
     Dates: start: 20190814, end: 20190816
  4. GLUCOPHAGE [Concomitant]
     Active Substance: METFORMIN HYDROCHLORIDE
     Indication: TYPE 2 DIABETES MELLITUS
     Dosage: 500 MG, 3X/DAY (1-1-1)
     Route: 048
     Dates: end: 20190902
  5. ZOCOR [Concomitant]
     Active Substance: SIMVASTATIN
     Indication: HYPERCHOLESTEROLAEMIA
     Dosage: 20 MG 1X/DAY (0-0-1)
     Route: 048
     Dates: end: 20190902
  6. VIMPAT [Suspect]
     Active Substance: LACOSAMIDE
     Indication: EPILEPSY
     Dosage: 300 MG, 1X/DAY
     Route: 042
     Dates: start: 20190816, end: 20190902
  7. OGAST [Concomitant]
     Active Substance: LANSOPRAZOLE
     Indication: GASTROOESOPHAGEAL REFLUX DISEASE
     Dosage: 30 MG,1X/DAY (0-0-1)
     Route: 048
     Dates: end: 20190823
  8. VIMPAT [Suspect]
     Active Substance: LACOSAMIDE
     Indication: EPILEPSY
     Dosage: 150 MG, 2X/DAY (1-0-1)
     Route: 048
     Dates: start: 201808, end: 20190816
  9. GLIBENCLAMIDE [Concomitant]
     Active Substance: GLYBURIDE
     Indication: TYPE 2 DIABETES MELLITUS
     Dosage: 2.5 MG, 2X/DAY (1/2-0-1/2)
     Route: 048
     Dates: end: 20190902
  10. RISPERDAL [Suspect]
     Active Substance: RISPERIDONE
     Indication: AGITATION
     Dosage: 1 MG, 2X/DAY (1-0-1)
     Route: 048
     Dates: start: 20190816, end: 20190822
  11. URBANYL [Suspect]
     Active Substance: CLOBAZAM
     Indication: EPILEPSY
     Dosage: 20 MG, 1X/DAY (0-0-1)
     Route: 048
     Dates: start: 201709, end: 20190825
  12. KEPPRA [Suspect]
     Active Substance: LEVETIRACETAM
     Indication: EPILEPSY
     Dosage: 1500 MG, 1X/DAY
     Route: 067
     Dates: start: 20190816, end: 20190902
  13. SPECIAFOLDINE [Concomitant]
     Active Substance: FOLIC ACID
     Indication: VITAMIN SUPPLEMENTATION
     Dosage: 5 MG, 1X/DAY
     Route: 048
     Dates: end: 20190902
  14. ACTISKENAN [Suspect]
     Active Substance: MORPHINE SULFATE
     Indication: PAIN
     Dosage: 10 MG, AS NEEDED
     Route: 048
     Dates: start: 2019, end: 20190902
  15. SKENAN [Suspect]
     Active Substance: MORPHINE SULFATE
     Indication: PAIN
     Dosage: 20 MG, 2X/DAY (2-0-2)
     Route: 048
     Dates: start: 2019, end: 20190822
  16. LOXAPAC [LOXAPINE SUCCINATE] [Suspect]
     Active Substance: LOXAPINE SUCCINATE
     Indication: AGITATION
     Dosage: 50 MG, AS NEEDED
     Route: 030
     Dates: start: 20190814, end: 20190822

REACTIONS (3)
  - Disturbance in attention [Fatal]
  - Benzodiazepine drug level increased [Fatal]
  - Depressed level of consciousness [Fatal]

NARRATIVE: CASE EVENT DATE: 20190816
